FAERS Safety Report 13276796 (Version 1)
Quarter: 2017Q1

REPORT INFORMATION
  Report Type: Spontaneous
  Country: US (occurrence: US)
  Receive Date: 20170227
  Receipt Date: 20170227
  Transmission Date: 20170428
  Serious: Yes (Hospitalization)
  Sender: FDA-Public Use
  Company Number: None

PATIENT
  Age: 74 Year
  Sex: Male

DRUGS (6)
  1. METOPROLOL TARTRATE. [Concomitant]
     Active Substance: METOPROLOL TARTRATE
  2. HCTZ [Concomitant]
     Active Substance: HYDROCHLOROTHIAZIDE
  3. LISINOPRIL. [Concomitant]
     Active Substance: LISINOPRIL
  4. METHADOSE [Concomitant]
     Active Substance: METHADONE HYDROCHLORIDE
  5. NIFEDICAL XL [Concomitant]
     Active Substance: NIFEDIPINE
  6. SUTENT [Suspect]
     Active Substance: SUNITINIB MALATE
     Indication: RENAL CANCER
     Dosage: 37.5 MG QD1-28 OF 42 BY MOUTH
     Route: 048

REACTIONS (2)
  - Drug dose omission [None]
  - Fracture [None]

NARRATIVE: CASE EVENT DATE: 20161211
